FAERS Safety Report 23240987 (Version 1)
Quarter: 2023Q4

REPORT INFORMATION
  Report Type: Spontaneous
  Country: US (occurrence: None)
  Receive Date: 20231128
  Receipt Date: 20231128
  Transmission Date: 20240110
  Serious: Yes (Death, Life-Threatening)
  Sender: FDA-Public Use
  Company Number: None

PATIENT
  Age: 84 Year
  Sex: Female
  Weight: 69 kg

DRUGS (2)
  1. CIPROFLOXACIN [Suspect]
     Active Substance: CIPROFLOXACIN
     Indication: Skin infection
     Dosage: FREQUENCY : TWICE A DAY;?
     Route: 048
     Dates: start: 20230601, end: 20230610
  2. CIPROFLOXACIN [Suspect]
     Active Substance: CIPROFLOXACIN
     Indication: Soft tissue infection

REACTIONS (4)
  - Cardiac arrest [None]
  - Aortic dissection [None]
  - Hypotension [None]
  - Blood lactic acid increased [None]

NARRATIVE: CASE EVENT DATE: 20231005
